FAERS Safety Report 4280984-5 (Version None)
Quarter: 2004Q1

REPORT INFORMATION
  Report Type: 
  Country: None (occurrence: None)
  Receive Date: 20040122
  Receipt Date: 20031001
  Transmission Date: 20041129
  Serious: Yes (Hospitalization)
  Sender: FDA-Public Use
  Company Number: REM_00031_2003

PATIENT
  Age: 73 Year
  Sex: Female
  Weight: 51 kg

DRUGS (7)
  1. REMODULIN [Suspect]
     Indication: PULMONARY HYPERTENSION
     Dosage: 23 NG/KG/MIN CONTINUOUS SC
     Route: 058
     Dates: start: 20030902
  2. PLACEBO [Suspect]
     Dosage: 23 NG/KG/MIN CONTINUOUS SC
     Route: 058
     Dates: start: 20030902
  3. COUMADIN [Concomitant]
  4. ULTRAM [Concomitant]
  5. TRILISATE [Concomitant]
  6. PLO GEL D [Concomitant]
  7. ULTRAM [Concomitant]

REACTIONS (2)
  - HYPERTENSION [None]
  - SYNCOPE VASOVAGAL [None]
